FAERS Safety Report 12641813 (Version 1)
Quarter: 2016Q3

REPORT INFORMATION
  Report Type: Report from Study
  Country: US (occurrence: US)
  Receive Date: 20160810
  Receipt Date: 20160810
  Transmission Date: 20161109
  Serious: Yes (Death)
  Sender: FDA-Public Use
  Company Number: US-MALLINCKRODT-T201603413

PATIENT
  Age: 80 Year
  Sex: Female

DRUGS (1)
  1. REPOSITORY CORTICOTROPIN INJECTION [Suspect]
     Active Substance: CORTICOTROPIN
     Indication: RHEUMATOID ARTHRITIS
     Dosage: 80U/1ML TWO TIMES PER WEEK (TUES. AND THURS.)
     Route: 058
     Dates: start: 19960709, end: 20160702

REACTIONS (1)
  - Death [Fatal]

NARRATIVE: CASE EVENT DATE: 20160702
